FAERS Safety Report 24972707 (Version 1)
Quarter: 2025Q1

REPORT INFORMATION
  Report Type: Report from Study
  Country: CA (occurrence: CA)
  Receive Date: 20250215
  Receipt Date: 20250215
  Transmission Date: 20250409
  Serious: Yes (Hospitalization, Other)
  Sender: AMGEN
  Company Number: CA-AMGEN-CANNI2025029801

PATIENT
  Age: 74 Year
  Sex: Male
  Weight: 72.562 kg

DRUGS (2)
  1. TARLATAMAB [Suspect]
     Active Substance: TARLATAMAB
     Indication: Small cell lung cancer
     Route: 065
     Dates: start: 202405
  2. INSULIN NOS [Concomitant]
     Active Substance: INSULIN NOS
     Indication: Diabetes mellitus

REACTIONS (10)
  - Cytokine release syndrome [Recovering/Resolving]
  - Small cell lung cancer metastatic [Unknown]
  - Arrhythmia [Recovering/Resolving]
  - Therapeutic response unexpected [Unknown]
  - Dysgeusia [Unknown]
  - Decreased appetite [Unknown]
  - Hypophagia [Unknown]
  - Hypoaesthesia [Recovering/Resolving]
  - Weight decreased [Unknown]
  - Fatigue [Unknown]

NARRATIVE: CASE EVENT DATE: 20240101
